FAERS Safety Report 13754829 (Version 1)
Quarter: 2017Q3

REPORT INFORMATION
  Report Type: Spontaneous
  Country: US (occurrence: US)
  Receive Date: 20170714
  Receipt Date: 20170714
  Transmission Date: 20171127
  Serious: Yes (Death)
  Sender: FDA-Public Use
  Company Number: None

PATIENT
  Age: 61 Year
  Sex: Female

DRUGS (10)
  1. VOTRIENT [Suspect]
     Active Substance: PAZOPANIB HYDROCHLORIDE
     Indication: RENAL CANCER
     Route: 048
     Dates: start: 20170511
  2. ZOLOFT [Concomitant]
     Active Substance: SERTRALINE HYDROCHLORIDE
  3. OMEGA 3 KRILL [Concomitant]
  4. VITAMIN D [Concomitant]
     Active Substance: CHOLECALCIFEROL
  5. FLONASE [Concomitant]
     Active Substance: FLUTICASONE PROPIONATE
  6. ALBUTEROL. [Concomitant]
     Active Substance: ALBUTEROL
  7. ATIVAN [Concomitant]
     Active Substance: LORAZEPAM
  8. COQ10 [Concomitant]
     Active Substance: UBIDECARENONE
  9. NORCO [Concomitant]
     Active Substance: ACETAMINOPHEN\HYDROCODONE BITARTRATE
  10. SENNALAX [Concomitant]

REACTIONS (1)
  - Death [None]
